FAERS Safety Report 8996231 (Version 1)
Quarter: 2013Q1

REPORT INFORMATION
  Report Type: Spontaneous
  Country: US (occurrence: US)
  Receive Date: 20130103
  Receipt Date: 20130103
  Transmission Date: 20140127
  Serious: Yes (Death, Other)
  Sender: FDA-Public Use
  Company Number: US-ELI_LILLY_AND_COMPANY-US201301000195

PATIENT
  Sex: Male

DRUGS (2)
  1. BYETTA [Suspect]
     Indication: TYPE 2 DIABETES MELLITUS
     Dosage: UNK
     Dates: start: 2005, end: 2006
  2. JANUVIA [Concomitant]
     Indication: TYPE 2 DIABETES MELLITUS
     Dosage: UNK
     Dates: start: 200002, end: 201105

REACTIONS (1)
  - Pancreatic carcinoma [Fatal]
